FAERS Safety Report 8269765-5 (Version None)
Quarter: 2012Q2

REPORT INFORMATION
  Report Type: 
  Country: None (occurrence: None)
  Receive Date: 20120405
  Receipt Date: 20111013
  Transmission Date: 20120825
  Serious: Yes (Hospitalization)
  Sender: FDA-Public Use
  Company Number: 2012040005

PATIENT
  Age: 77 Year
  Sex: Female

DRUGS (4)
  1. CRIZOTINIB (CRIZOTINIB) [Suspect]
     Indication: LUNG NEOPLASM MALIGNANT
     Dosage: 500 MG (250 MG, 2 IN 1 D), ORAL
     Route: 048
     Dates: start: 20110602, end: 20110622
  2. NEBIVOLOL HCL [Suspect]
     Indication: HYPERTENSION
     Dosage: ORAL
     Route: 048
     Dates: start: 20110602, end: 20110621
  3. TORSEMIDE [Suspect]
     Indication: HYPERTENSION
     Dosage: 10 MG (10 MG, 1 IN 1 D), ORAL
     Route: 048
     Dates: start: 20090101, end: 20110621
  4. VALSARTAN [Suspect]
     Indication: HYPERTENSION
     Dosage: 320 MG (160 MG, 2 IN 1 D),
     Dates: start: 20090101, end: 20110621

REACTIONS (10)
  - VOMITING [None]
  - ALANINE AMINOTRANSFERASE INCREASED [None]
  - ATRIAL FIBRILLATION [None]
  - NAUSEA [None]
  - GENERALISED OEDEMA [None]
  - BACTERIAL TEST POSITIVE [None]
  - BLOOD GLUCOSE INCREASED [None]
  - WEIGHT INCREASED [None]
  - BLOOD URIC ACID INCREASED [None]
  - RENAL FAILURE ACUTE [None]
